FAERS Safety Report 24961675 (Version 1)
Quarter: 2025Q1

REPORT INFORMATION
  Report Type: Spontaneous
  Country: US (occurrence: None)
  Receive Date: 20250212
  Receipt Date: 20250212
  Transmission Date: 20250409
  Serious: Yes (Other)
  Sender: FDA-CTU
  Company Number: None

PATIENT
  Age: 23 Year
  Sex: Female
  Weight: 69.75 kg

DRUGS (8)
  1. HERBALS\TETRAHYDROCANNABIPHOROL [Suspect]
     Active Substance: HERBALS\TETRAHYDROCANNABIPHOROL
     Dates: start: 20250208, end: 20250208
  2. ZOLOFT [Suspect]
     Active Substance: SERTRALINE HYDROCHLORIDE
  3. WELLBUTRIN [Suspect]
     Active Substance: BUPROPION HYDROCHLORIDE
  4. Cymalta [Concomitant]
  5. BUSPAR [Concomitant]
     Active Substance: BUSPIRONE HYDROCHLORIDE
  6. VITAMIN D [Concomitant]
     Active Substance: VITAMIN D NOS
  7. VITAMINS [Concomitant]
     Active Substance: VITAMINS
  8. CRANBERRY [Concomitant]
     Active Substance: CRANBERRY

REACTIONS (8)
  - Dysstasia [None]
  - Vomiting [None]
  - Chills [None]
  - Hallucination, auditory [None]
  - Dropped head syndrome [None]
  - Hallucination, visual [None]
  - Vision blurred [None]
  - Migraine [None]

NARRATIVE: CASE EVENT DATE: 20250208
